FAERS Safety Report 23092668 (Version 1)
Quarter: 2023Q4

REPORT INFORMATION
  Report Type: Spontaneous
  Country: SE (occurrence: SE)
  Receive Date: 20231021
  Receipt Date: 20231021
  Transmission Date: 20240110
  Serious: Yes (Hospitalization)
  Sender: FDA-Public Use
  Company Number: None

PATIENT
  Age: 75 Year
  Sex: Female

DRUGS (2)
  1. CLINDAMYCIN [Suspect]
     Active Substance: CLINDAMYCIN
     Indication: Post procedural infection
     Dosage: FOR ACTIVE INGREDIENT CLINDAMYCIN THE STRENGTH IS 300 MILLIGRAMS. FOR ACTIVE INGREDIENT CLINDAMYCIN
     Dates: start: 20230716, end: 20230716
  2. CLINDAMYCIN [Suspect]
     Active Substance: CLINDAMYCIN
     Indication: Skin infection

REACTIONS (11)
  - Oropharyngeal blistering [Recovering/Resolving]
  - Diarrhoea [Recovering/Resolving]
  - Drug hypersensitivity [Recovering/Resolving]
  - Pyrexia [Recovering/Resolving]
  - Oral mucosal blistering [Recovering/Resolving]
  - Disorganised speech [Recovering/Resolving]
  - Nausea [Recovering/Resolving]
  - Fall [Recovering/Resolving]
  - Urticaria [Recovering/Resolving]
  - Rash vesicular [Recovering/Resolving]
  - Product substitution issue [Recovering/Resolving]

NARRATIVE: CASE EVENT DATE: 20230101
